FAERS Safety Report 18972719 (Version 3)
Quarter: 2021Q2

REPORT INFORMATION
  Report Type: Spontaneous
  Country: US (occurrence: US)
  Receive Date: 20210305
  Receipt Date: 20210506
  Transmission Date: 20210717
  Serious: No
  Sender: FDA-Public Use
  Company Number: US-SA-2021SA074256

PATIENT
  Age: 49 Year
  Sex: Male

DRUGS (9)
  1. METOPROLOL SUCCINATE. [Concomitant]
     Active Substance: METOPROLOL SUCCINATE
  2. PROAIR DIGIHALER [Concomitant]
     Active Substance: ALBUTEROL SULFATE
  3. TRELEGY ELLIPTA [Concomitant]
     Active Substance: FLUTICASONE FUROATE\UMECLIDINIUM BROMIDE\VILANTEROL TRIFENATATE
  4. DUPIXENT [Suspect]
     Active Substance: DUPILUMAB
     Indication: ASTHMA
     Dosage: 300 MG, QOW
     Route: 058
  5. FISH OIL [Concomitant]
     Active Substance: FISH OIL
  6. LORATA?DINE D [LORATADINE;PSEUDOEPHEDRINE HYDROCHLORIDE] [Concomitant]
  7. POTASSIUM CHLORIDE. [Concomitant]
     Active Substance: POTASSIUM CHLORIDE
  8. NEXIUM I.V. [Concomitant]
     Active Substance: ESOMEPRAZOLE SODIUM
  9. ATORVASTATIN CALCIUM ANHYDROUS. [Concomitant]
     Active Substance: ATORVASTATIN CALCIUM ANHYDROUS

REACTIONS (4)
  - Injection site pain [Unknown]
  - Injection site swelling [Unknown]
  - Product use issue [Unknown]
  - Injection site extravasation [Unknown]
